FAERS Safety Report 10181160 (Version 1)
Quarter: 2014Q2

REPORT INFORMATION
  Report Type: Spontaneous
  Country: US (occurrence: US)
  Receive Date: 20140519
  Receipt Date: 20140519
  Transmission Date: 20141212
  Serious: No
  Sender: FDA-Public Use
  Company Number: US-AMGEN INC.-USASP2014026404

PATIENT
  Age: 74 Year
  Sex: Female

DRUGS (7)
  1. PROLIA [Suspect]
     Indication: OSTEOPOROSIS POSTMENOPAUSAL
     Dosage: UNK
     Route: 065
     Dates: start: 20140407
  2. LEVOTHYROXINE [Concomitant]
     Dosage: 0.1 MG, QD
  3. LOSARTAN [Concomitant]
     Dosage: 100 MG, QD
  4. VITAMIN B COMPLEX [Concomitant]
  5. VITAMIN D                          /00107901/ [Concomitant]
  6. CALCIUM CITRATE W/ MAGNESIUM [Concomitant]
  7. ZETIA [Concomitant]
     Dosage: 10 MG, QD

REACTIONS (2)
  - Gingival bleeding [Unknown]
  - Mouth haemorrhage [Unknown]
